FAERS Safety Report 12549172 (Version 3)
Quarter: 2016Q3

REPORT INFORMATION
  Report Type: Spontaneous
  Country: US (occurrence: US)
  Receive Date: 20160712
  Receipt Date: 20160722
  Transmission Date: 20161109
  Serious: Yes (Death)
  Sender: FDA-Public Use
  Company Number: US-PFIZER INC-2016331885

PATIENT
  Age: 81 Year
  Sex: Female

DRUGS (1)
  1. TORISEL [Suspect]
     Active Substance: TEMSIROLIMUS
     Dosage: 25 MG, WEEKLY
     Route: 042
     Dates: start: 20160509, end: 20160523

REACTIONS (2)
  - Cardiac arrest [Fatal]
  - Blood potassium decreased [Unknown]

NARRATIVE: CASE EVENT DATE: 20160523
